FAERS Safety Report 5040469-5 (Version None)
Quarter: 2006Q2

REPORT INFORMATION
  Report Type: 
  Country: None (occurrence: None)
  Receive Date: 20060627
  Receipt Date: 20060627
  Transmission Date: 20061013
  Serious: Yes (Other)
  Sender: FDA-Public Use
  Company Number: None

PATIENT
  Age: 58 Year
  Sex: Male

DRUGS (1)
  1. EZETIMIBE/SIMVASTATIN 5/40 MG [Suspect]
     Indication: HYPERLIPIDAEMIA
     Dosage: 5/40 MG Q BEDTIME PO
     Route: 048

REACTIONS (2)
  - CONDITION AGGRAVATED [None]
  - PAIN IN EXTREMITY [None]
